FAERS Safety Report 26106431 (Version 2)
Quarter: 2025Q4

REPORT INFORMATION
  Report Type: Spontaneous
  Country: MA (occurrence: MA)
  Receive Date: 20251201
  Receipt Date: 20251219
  Transmission Date: 20260117
  Serious: Yes (Other)
  Sender: ALEXION PHARMACEUTICALS
  Company Number: MA-AstraZeneca-CH-01003010A

PATIENT
  Age: 69 Year
  Sex: Female

DRUGS (1)
  1. TAGRISSO [Suspect]
     Active Substance: OSIMERTINIB
     Indication: Non-small cell lung cancer
     Dosage: 80 MILLIGRAM, QD
     Route: 061
     Dates: start: 20250722

REACTIONS (1)
  - Autoimmune disorder [Recovered/Resolved]

NARRATIVE: CASE EVENT DATE: 20251002
